FAERS Safety Report 11203056 (Version 1)
Quarter: 2015Q2

REPORT INFORMATION
  Report Type: Spontaneous
  Country: US (occurrence: None)
  Receive Date: 20150617
  Receipt Date: 20150617
  Transmission Date: 20150821
  Serious: Yes (Disabling)
  Sender: FDA-Public Use
  Company Number: None

PATIENT
  Age: 77 Year
  Sex: Female
  Weight: 66.23 kg

DRUGS (12)
  1. LYRICA [Suspect]
     Active Substance: PREGABALIN
     Indication: MYALGIA
     Dosage: 25 MG 1ST MTH?50 MG AFTER ?25 MG (14 DAYS TO GET OFF IT?THERAPY JAN 2015 ?END OF MARCH 2015
     Route: 048
     Dates: start: 201501, end: 201503
  2. RED YEAST RICE [Concomitant]
     Active Substance: DIETARY SUPPLEMENT
  3. CO-Q10 [Concomitant]
  4. FLAXSEED [Concomitant]
     Active Substance: FLAX SEED
  5. LYRICA [Suspect]
     Active Substance: PREGABALIN
     Indication: NEURALGIA
     Dosage: 25 MG 1ST MTH?50 MG AFTER ?25 MG (14 DAYS TO GET OFF IT?THERAPY JAN 2015 ?END OF MARCH 2015
     Route: 048
     Dates: start: 201501, end: 201503
  6. MULTI VIT [Concomitant]
  7. AMLODOPINE [Concomitant]
  8. BABY ASPERINE [Concomitant]
  9. OMEGA 3 [Concomitant]
     Active Substance: OMEGA-3 FATTY ACIDS
  10. CALCIUM [Concomitant]
     Active Substance: CALCIUM
  11. TRAMADOL [Concomitant]
     Active Substance: TRAMADOL
  12. OMEPRAZOLE. [Concomitant]
     Active Substance: OMEPRAZOLE

REACTIONS (4)
  - Gait disturbance [None]
  - Drug ineffective [None]
  - Muscular weakness [None]
  - Peripheral swelling [None]

NARRATIVE: CASE EVENT DATE: 201501
